FAERS Safety Report 25978796 (Version 3)
Quarter: 2025Q4

REPORT INFORMATION
  Report Type: Report from Study
  Country: EG (occurrence: EG)
  Receive Date: 20251030
  Receipt Date: 20251119
  Transmission Date: 20260117
  Serious: Yes (Other)
  Sender: NOVARTIS
  Company Number: EG-002147023-NVSC2025EG166649

PATIENT
  Age: 74 Year
  Sex: Male
  Weight: 73 kg

DRUGS (5)
  1. ENTRESTO [Suspect]
     Active Substance: SACUBITRIL\VALSARTAN
     Indication: Cardiac failure
     Dosage: 50 MG, BID
     Route: 048
     Dates: start: 20250610
  2. ENTRESTO [Suspect]
     Active Substance: SACUBITRIL\VALSARTAN
     Dosage: 100 MG, BID
     Route: 048
  3. ENTRESTO [Suspect]
     Active Substance: SACUBITRIL\VALSARTAN
     Dosage: UNK, OTHER (ONE TABLET OF ENTRESTO 100MG + ONE TABLET OF ENTRESTO 50MG IN THE MORNING AND ONE TABLET
     Route: 048
  4. ENTRESTO [Suspect]
     Active Substance: SACUBITRIL\VALSARTAN
     Dosage: UNK, OTHER (ENTRESTO 100MG ONE TABLET + ENTRESTO 50MG ONE TABLET IN THE MORNING AND ENTRESTO 100MG O
     Route: 048
  5. Randil [Concomitant]
     Indication: Cardiac disorder
     Dosage: 10 MG, BID
     Route: 048
     Dates: start: 20250610

REACTIONS (3)
  - Dysgeusia [Not Recovered/Not Resolved]
  - Hypotension [Recovered/Resolved]
  - Off label use [Unknown]

NARRATIVE: CASE EVENT DATE: 20250610
